FAERS Safety Report 8061171-1 (Version None)
Quarter: 2012Q1

REPORT INFORMATION
  Report Type: 
  Country: None (occurrence: None)
  Receive Date: 20120120
  Receipt Date: 20110705
  Transmission Date: 20120608
  Serious: No
  Sender: FDA-Public Use
  Company Number: US-ALLERGAN-1108346US

PATIENT
  Age: 67 Year

DRUGS (1)
  1. RESTASIS [Suspect]
     Indication: PRODUCT USED FOR UNKNOWN INDICATION
     Dosage: UNK
     Dates: start: 20110613, end: 20110613

REACTIONS (5)
  - HYPERSENSITIVITY [None]
  - OCULAR HYPERAEMIA [None]
  - EYE DISCHARGE [None]
  - CONJUNCTIVAL HYPERAEMIA [None]
  - LACRIMATION INCREASED [None]
